FAERS Safety Report 9577672 (Version 2)
Quarter: 2013Q4

REPORT INFORMATION
  Report Type: Report from Study
  Country: US (occurrence: US)
  Receive Date: 20131001
  Receipt Date: 20131017
  Transmission Date: 20140711
  Serious: Yes (Death, Other)
  Sender: FDA-Public Use
  Company Number: US-BRISTOL-MYERS SQUIBB COMPANY-19421395

PATIENT
  Age: 53 Year
  Sex: Male
  Weight: 63.4 kg

DRUGS (1)
  1. IPILIMUMAB [Suspect]
     Indication: NON-HODGKIN^S LYMPHOMA
     Dosage: LAST ADMINISTERED DATE 19JUL13
     Route: 042
     Dates: start: 20130719

REACTIONS (2)
  - Malignant neoplasm progression [Fatal]
  - Graft versus host disease [Fatal]
